FAERS Safety Report 9799512 (Version 2)
Quarter: 2014Q1

REPORT INFORMATION
  Report Type: Spontaneous
  Country: US (occurrence: US)
  Receive Date: 20140106
  Receipt Date: 20140106
  Transmission Date: 20141002
  Serious: Yes (Disabling)
  Sender: FDA-Public Use
  Company Number: PHEH2013US025084

PATIENT
  Age: 74 Year
  Sex: Female

DRUGS (5)
  1. RECLAST [Suspect]
     Indication: OSTEOPOROSIS
     Dosage: UNK UKN, UNK
     Route: 042
     Dates: start: 20131031
  2. AMLODIPINE BESYLATE [Concomitant]
     Dosage: UNK UKN, UNK
  3. LEVOTHYROXINE [Concomitant]
     Dosage: UNK UKN, UNK
  4. OMEPRAZOLE [Concomitant]
     Dosage: UNK UKN, UNK
  5. FOSAMAX [Concomitant]
     Dosage: UNK UKN, UNK

REACTIONS (6)
  - Mobility decreased [Unknown]
  - Oral pain [Unknown]
  - Gastrointestinal disorder [Unknown]
  - Groin pain [Unknown]
  - Pain [Unknown]
  - Pain in extremity [Unknown]
